FAERS Safety Report 6056564-8 (Version None)
Quarter: 2009Q1

REPORT INFORMATION
  Report Type: 
  Country: None (occurrence: None)
  Receive Date: 20090126
  Receipt Date: 20090126
  Transmission Date: 20090719
  Serious: No
  Sender: FDA-Public Use
  Company Number: None

PATIENT
  Sex: Female
  Weight: 79.3795 kg

DRUGS (4)
  1. CELEBREX [Suspect]
     Indication: ARTHRITIS
     Dosage: 1 CAPSULE PER DAY SWELLING AND CRAMPS SEVERAL DAYS
     Dates: start: 20090106
  2. CELEBREX [Suspect]
     Indication: ARTHRITIS
     Dosage: 1 CAPSULE PER DAY SWELLING AND CRAMPS SEVERAL DAYS
     Dates: start: 20090107
  3. CELEBREX [Suspect]
     Indication: ARTHRITIS
     Dosage: 1 CAPSULE PER DAY SWELLING AND CRAMPS SEVERAL DAYS
     Dates: start: 20090108
  4. CELEBREX [Suspect]
     Indication: ARTHRITIS
     Dosage: 1 CAPSULE PER DAY SWELLING AND CRAMPS SEVERAL DAYS
     Dates: start: 20090109

REACTIONS (3)
  - MUSCLE SPASMS [None]
  - OEDEMA PERIPHERAL [None]
  - PAIN IN EXTREMITY [None]
